FAERS Safety Report 20499698 (Version 1)
Quarter: 2022Q1

REPORT INFORMATION
  Report Type: Spontaneous
  Country: US (occurrence: US)
  Receive Date: 20220222
  Receipt Date: 20220222
  Transmission Date: 20220423
  Serious: No
  Sender: FDA-Public Use
  Company Number: US-UCBSA-2020048051

PATIENT
  Age: 43 Year
  Sex: Male

DRUGS (10)
  1. LEVETIRACETAM [Suspect]
     Active Substance: LEVETIRACETAM
     Indication: Epilepsy
     Dosage: 2000 MILLIGRAM, 2X/DAY (BID)
  2. ZONISAMIDE [Concomitant]
     Active Substance: ZONISAMIDE
     Indication: Epilepsy
     Dosage: 50 MILLIGRAM, DAILY
  3. ZONISAMIDE [Concomitant]
     Active Substance: ZONISAMIDE
     Dosage: 350 MILLIGRAM, DAILY
  4. ZONISAMIDE [Concomitant]
     Active Substance: ZONISAMIDE
     Dosage: 500 MILLIGRAM
  5. VALPROIC ACID [Concomitant]
     Active Substance: VALPROIC ACID
     Indication: Epilepsy
     Dosage: 1500 MG, DAILY
  6. VALPROIC ACID [Concomitant]
     Active Substance: VALPROIC ACID
     Dosage: 2000 MG, DAILY
  7. LAMOTRIGINE [Concomitant]
     Active Substance: LAMOTRIGINE
     Indication: Epilepsy
  8. PREGABALIN [Concomitant]
     Active Substance: PREGABALIN
     Indication: Epilepsy
  9. TOPIRAMATE [Concomitant]
     Active Substance: TOPIRAMATE
     Indication: Epilepsy
  10. OXCARBAZEPINE [Concomitant]
     Active Substance: OXCARBAZEPINE
     Indication: Epilepsy

REACTIONS (2)
  - Overdose [Unknown]
  - Off label use [Unknown]
